FAERS Safety Report 8441737 (Version 4)
Quarter: 2012Q4

REPORT INFORMATION
  Report Type: 
  Country: US (occurrence: US)
  Receive Date: 20120305
  Receipt Date: 20120904
  Transmission Date: 20130627
  Serious: Yes (Life-Threatening, Hospitalization)
  Sender: FDA-Public Use
  Company Number: US-US-EMD SERONO, INC.-7116425

PATIENT
  Age: 52 None
  Sex: Female
  Weight: 88 kg

DRUGS (6)
  1. REBIF [Suspect]
     Indication: MULTIPLE SCLEROSIS
     Route: 058
     Dates: start: 20111020, end: 20120302
  2. REBIF [Suspect]
     Route: 058
     Dates: end: 201205
  3. METHADONE [Suspect]
     Indication: PAIN
  4. RITALIN [Suspect]
     Indication: DEPRESSED LEVEL OF CONSCIOUSNESS
  5. KLONOPIN [Concomitant]
     Indication: SLEEP DISORDER
  6. PAIN PUMP [Concomitant]
     Indication: PAIN

REACTIONS (11)
  - Ventricular tachycardia [Recovered/Resolved]
  - Loss of consciousness [Recovered/Resolved]
  - Respiratory arrest [Recovered/Resolved]
  - Cold sweat [Recovered/Resolved]
  - Hyperhidrosis [Recovered/Resolved]
  - Urinary retention [Unknown]
  - Urinary tract infection [Unknown]
  - Multiple sclerosis relapse [Unknown]
  - Chest pain [Recovered/Resolved]
  - Hepatic enzyme increased [Unknown]
  - Influenza like illness [Unknown]
